FAERS Safety Report 14553475 (Version 1)
Quarter: 2018Q1

REPORT INFORMATION
  Report Type: Spontaneous
  Country: US (occurrence: US)
  Receive Date: 20180216
  Receipt Date: 20180216
  Transmission Date: 20180509
  Serious: Yes (Other)
  Sender: FDA-Public Use
  Company Number: None

PATIENT
  Age: 28 Year
  Sex: Female
  Weight: 81 kg

DRUGS (4)
  1. FOLIC ACID. [Concomitant]
     Active Substance: FOLIC ACID
  2. CALCIUM [Concomitant]
     Active Substance: CALCIUM
  3. LAMOTRIGINE 200 MG TABLETS, CVS PRESCRIPTION 280096110 FILLED 11-6-17 [Suspect]
     Active Substance: LAMOTRIGINE
     Indication: EPILEPSY
     Dosage: ?          QUANTITY:1 TABLET(S);?
     Route: 048
     Dates: start: 20180107
  4. VITAMIN D [Concomitant]
     Active Substance: CHOLECALCIFEROL

REACTIONS (8)
  - Generalised tonic-clonic seizure [None]
  - Mydriasis [None]
  - Unresponsive to stimuli [None]
  - Product substitution issue [None]
  - Hypotonia [None]
  - Foaming at mouth [None]
  - Muscle rigidity [None]
  - Dysphemia [None]

NARRATIVE: CASE EVENT DATE: 20180114
